FAERS Safety Report 6239622-4 (Version None)
Quarter: 2009Q2

REPORT INFORMATION
  Report Type: 
  Country: None (occurrence: None)
  Receive Date: 20090622
  Receipt Date: 20090612
  Transmission Date: 20091009
  Serious: Yes (Other)
  Sender: FDA-Public Use
  Company Number: FR-ABBOTT-09P-056-0579490-00

PATIENT
  Age: 30 Year
  Sex: Female

DRUGS (1)
  1. MONONAXY TABLETS [Suspect]
     Indication: LARYNGITIS

REACTIONS (4)
  - ANOREXIA [None]
  - FOREIGN BODY TRAUMA [None]
  - PAIN [None]
  - WEIGHT DECREASED [None]
